FAERS Safety Report 15575326 (Version 1)
Quarter: 2018Q4

REPORT INFORMATION
  Report Type: Spontaneous
  Country: US (occurrence: US)
  Receive Date: 20181101
  Receipt Date: 20181101
  Transmission Date: 20190205
  Serious: Yes (Other)
  Sender: FDA-Public Use
  Company Number: None

PATIENT
  Age: 88 Year
  Sex: Female

DRUGS (10)
  1. FAMOTIDINE 20 MG [Concomitant]
     Active Substance: FAMOTIDINE
     Dates: start: 20181009, end: 20181031
  2. LEVOTHYROXINE 75 MCG [Concomitant]
     Dates: start: 20181004, end: 20181031
  3. NORCO 5/325 MG [Concomitant]
     Dates: start: 20181004, end: 20181031
  4. CIPROFLOXACIN. [Suspect]
     Active Substance: CIPROFLOXACIN
     Indication: URINARY TRACT INFECTION
     Route: 048
     Dates: start: 20181019, end: 20181024
  5. CALCITONIN NS [Concomitant]
     Dates: start: 20181005, end: 20181031
  6. DILTIAZEM ER 120 MG [Concomitant]
     Dates: start: 20181004, end: 20181031
  7. LIDOCAINE PATCH 4% [Concomitant]
     Dates: start: 20181004, end: 20181031
  8. GABAPENTIN 300 MG [Concomitant]
     Active Substance: GABAPENTIN
     Dates: start: 20181004, end: 20181024
  9. MIRTAZEPINE 15 MG [Concomitant]
     Dates: start: 20181012, end: 20181024
  10. PROPANOLOL 20 MG [Concomitant]
     Dates: start: 20181004, end: 20181031

REACTIONS (1)
  - Hallucination [None]

NARRATIVE: CASE EVENT DATE: 20181024
